FAERS Safety Report 6589013-1 (Version None)
Quarter: 2010Q1

REPORT INFORMATION
  Report Type: 
  Country: None (occurrence: None)
  Receive Date: 20100218
  Receipt Date: 20100209
  Transmission Date: 20100710
  Serious: Yes (Death)
  Sender: FDA-Public Use
  Company Number: IE-GENENTECH-298072

PATIENT
  Age: 19 Year
  Sex: Male

DRUGS (1)
  1. METALYSE [Suspect]
     Indication: PULMONARY EMBOLISM

REACTIONS (1)
  - DEATH [None]
